FAERS Safety Report 18579452 (Version 23)
Quarter: 2021Q4

REPORT INFORMATION
  Report Type: Report from Study
  Country: BR (occurrence: BR)
  Receive Date: 20201204
  Receipt Date: 20211105
  Transmission Date: 20220304
  Serious: Yes (Hospitalization, Other)
  Sender: FDA-Public Use
  Company Number: BR-KOREA IPSEN PHARMA-2020-21120

PATIENT
  Age: 53 Year
  Sex: Male
  Weight: 85 kg

DRUGS (7)
  1. LANREOTIDE ACETATE [Suspect]
     Active Substance: LANREOTIDE ACETATE
     Indication: Acromegaly
     Dosage: 1 SYRINGE EACH 28 DAYS (STRENGTH: 120 MG)
     Route: 058
     Dates: start: 2011, end: 20201022
  2. LANREOTIDE ACETATE [Suspect]
     Active Substance: LANREOTIDE ACETATE
     Dosage: 60 MG (ADMINISTERED HALF DOSAGE)
     Route: 058
     Dates: start: 20201022, end: 20201022
  3. LANREOTIDE ACETATE [Suspect]
     Active Substance: LANREOTIDE ACETATE
     Dosage: 1 SYRINGE EACH 28 DAYS (STRENGTH: 120 MG)
     Route: 058
     Dates: start: 2020
  4. ATORVASTATIN [Concomitant]
     Active Substance: ATORVASTATIN
     Indication: Hypercholesterolaemia
     Dosage: 1 TABLET EACH DAY (STRENGTH: 10 MG); 7 OR 8 YEARS AGO (ONGOING)
     Route: 048
  5. VITAMIN D [Concomitant]
     Active Substance: VITAMIN D NOS
     Indication: Vitamin supplementation
     Dosage: 3 DROPS; 7 OR 8 YEARS AGO (ONGOING)
     Route: 048
  6. TESTOSTERONE [Concomitant]
     Active Substance: TESTOSTERONE
     Indication: Hormone therapy
     Dosage: 6 YEARS AGO (ONGOING)
     Route: 048
     Dates: start: 2014
  7. CLOMIPHENE [Concomitant]
     Active Substance: CLOMIPHENE
     Dosage: 1 TABLET EACH DAY (STRENGTH: 50 MG); 3 MONTHS AGO (ONGOING)
     Dates: start: 2020

REACTIONS (25)
  - Dysuria [Not Recovered/Not Resolved]
  - Rhinitis [Recovered/Resolved]
  - Throat irritation [Recovered/Resolved]
  - Cholecystitis [Recovered/Resolved]
  - Bone pain [Recovered/Resolved]
  - Movement disorder [Recovering/Resolving]
  - Headache [Recovered/Resolved]
  - Hypertension [Not Recovered/Not Resolved]
  - Tinnitus [Recovering/Resolving]
  - Vision blurred [Not Recovered/Not Resolved]
  - Pain [Not Recovered/Not Resolved]
  - Infected cyst [Recovered/Resolved]
  - Blood growth hormone increased [Not Recovered/Not Resolved]
  - Prostatomegaly [Not Recovered/Not Resolved]
  - Spinal pain [Recovered/Resolved]
  - Somnolence [Not Recovered/Not Resolved]
  - Hyperglycaemia [Not Recovered/Not Resolved]
  - Fatigue [Recovered/Resolved]
  - Eye irritation [Recovered/Resolved]
  - Influenza [Recovered/Resolved]
  - Asthenia [Recovered/Resolved]
  - Incorrect dose administered [Unknown]
  - Product dose omission issue [Unknown]
  - Product dose omission issue [Unknown]
  - Product dose omission issue [Unknown]

NARRATIVE: CASE EVENT DATE: 20110101
